FAERS Safety Report 17910562 (Version 2)
Quarter: 2020Q2

REPORT INFORMATION
  Report Type: Spontaneous
  Country: US (occurrence: US)
  Receive Date: 20200618
  Receipt Date: 20200619
  Transmission Date: 20200714
  Serious: Yes (Other)
  Sender: FDA-Public Use
  Company Number: US-RECKITT BENCKISER HEALTHCARE INT LIMITED-RB-88275-2020

PATIENT
  Age: 77 Year
  Sex: Female

DRUGS (4)
  1. CEPACOL INSTAMAX SORE THROAT ARCTIC CHERRY [Suspect]
     Active Substance: BENZOCAINE\MENTHOL
     Indication: ORAL PAIN
  2. CEPACOL INSTAMAX SORE THROAT ARCTIC CHERRY [Suspect]
     Active Substance: BENZOCAINE\MENTHOL
     Indication: OROPHARYNGEAL PAIN
     Dosage: 1 DOSAGE FORM, SINGLE
     Route: 065
     Dates: start: 20200608
  3. METFORMIN [Concomitant]
     Active Substance: METFORMIN HYDROCHLORIDE
     Indication: PRODUCT USED FOR UNKNOWN INDICATION
     Dosage: UNKNOWN
     Route: 065
  4. COUMADIN [Concomitant]
     Active Substance: WARFARIN SODIUM
     Indication: PRODUCT USED FOR UNKNOWN INDICATION
     Dosage: 500 MILLIGRAM, BID
     Route: 065

REACTIONS (1)
  - Blood glucose increased [Recovered/Resolved]

NARRATIVE: CASE EVENT DATE: 20200609
